FAERS Safety Report 5360009-0 (Version None)
Quarter: 2007Q2

REPORT INFORMATION
  Report Type: 
  Country: None (occurrence: None)
  Receive Date: 20070618
  Receipt Date: 20070606
  Transmission Date: 20071010
  Serious: Yes (Other)
  Sender: FDA-Public Use
  Company Number: US-JNJFOC-20070502445

PATIENT
  Sex: Female

DRUGS (6)
  1. REMICADE [Suspect]
     Route: 042
  2. REMICADE [Suspect]
     Indication: RHEUMATOID ARTHRITIS
     Route: 042
  3. CELEBREX [Concomitant]
     Indication: RHEUMATOID ARTHRITIS
  4. MINOCIN [Concomitant]
  5. AZULFADINE [Concomitant]
     Indication: RHEUMATOID ARTHRITIS
  6. HUMIRA [Concomitant]

REACTIONS (1)
  - BREAST CANCER [None]
